FAERS Safety Report 5451599-8 (Version None)
Quarter: 2007Q3

REPORT INFORMATION
  Report Type: 
  Country: None (occurrence: None)
  Receive Date: 20070913
  Receipt Date: 20070830
  Transmission Date: 20080115
  Serious: Yes (Hospitalization)
  Sender: FDA-Public Use
  Company Number: JP-BOEHRINGER INGELHEIM PHARMACEUTICALS, INC.-2007-BP-18361NB

PATIENT
  Sex: Female
  Weight: 42.5 kg

DRUGS (9)
  1. MOBIC [Suspect]
     Indication: POLYMYALGIA RHEUMATICA
     Route: 048
     Dates: start: 20070616, end: 20070629
  2. SIMVASTATIN [Suspect]
     Indication: HYPERLIPIDAEMIA
     Route: 048
     Dates: end: 20070714
  3. ACTONEL [Suspect]
     Indication: OSTEOPOROSIS
     Route: 048
     Dates: start: 20061225, end: 20070714
  4. GLIMICRON [Concomitant]
     Indication: TYPE 2 DIABETES MELLITUS
     Route: 048
  5. KINEDAK [Concomitant]
     Indication: TYPE 2 DIABETES MELLITUS
     Route: 048
  6. METHYCOBAL [Concomitant]
     Indication: TYPE 2 DIABETES MELLITUS
     Route: 048
  7. ANPLAG [Concomitant]
     Indication: TYPE 2 DIABETES MELLITUS
     Route: 048
  8. DEPAS [Concomitant]
     Indication: INSOMNIA
     Route: 048
     Dates: start: 20070406, end: 20070721
  9. PURSENNID (SENNOSIDE) [Concomitant]
     Indication: CONSTIPATION
     Route: 048
     Dates: start: 20070420, end: 20070721

REACTIONS (4)
  - BLOOD CREATINE PHOSPHOKINASE INCREASED [None]
  - EOSINOPHIL COUNT INCREASED [None]
  - MUSCULAR WEAKNESS [None]
  - PAIN [None]
